FAERS Safety Report 5809787-4 (Version None)
Quarter: 2008Q3

REPORT INFORMATION
  Report Type: 
  Country: None (occurrence: None)
  Receive Date: 20080715
  Receipt Date: 20080709
  Transmission Date: 20090109
  Serious: Yes (Other)
  Sender: FDA-Public Use
  Company Number: JP-AVENTIS-200812140JP

PATIENT
  Age: 11 Year
  Sex: Female

DRUGS (2)
  1. CLAFORAN [Suspect]
     Dates: start: 20010901, end: 20011001
  2. AMPICILLIN [Suspect]
     Dates: start: 20010901, end: 20011001

REACTIONS (1)
  - DRUG RASH WITH EOSINOPHILIA AND SYSTEMIC SYMPTOMS [None]
